FAERS Safety Report 23889345 (Version 1)
Quarter: 2024Q2

REPORT INFORMATION
  Report Type: Spontaneous
  Country: US (occurrence: None)
  Receive Date: 20240523
  Receipt Date: 20240523
  Transmission Date: 20240717
  Serious: Yes (Hospitalization)
  Sender: FDA-Public Use
  Company Number: None

PATIENT
  Sex: Male

DRUGS (9)
  1. INFLECTRA [Suspect]
     Active Substance: INFLIXIMAB-DYYB
     Indication: Hidradenitis
     Route: 042
     Dates: start: 20220428
  2. ATORVASTATIN [Concomitant]
     Active Substance: ATORVASTATIN
  3. BETA DIPROP [Concomitant]
  4. BETAMETH DIP [Concomitant]
  5. BISACODYL [Concomitant]
     Active Substance: BISACODYL
  6. CALCITRIOL [Concomitant]
     Active Substance: CALCITRIOL
  7. DICYCLOMINE [Concomitant]
     Active Substance: DICYCLOMINE HYDROCHLORIDE
  8. DIPHENHYDRAMINE HYDROCHLORIDE [Concomitant]
     Active Substance: DIPHENHYDRAMINE HYDROCHLORIDE
  9. FLUZONE QUAD [Concomitant]

REACTIONS (2)
  - Arthralgia [None]
  - Joint abscess [None]
